FAERS Safety Report 6149081-8 (Version None)
Quarter: 2009Q2

REPORT INFORMATION
  Report Type: 
  Country: None (occurrence: None)
  Receive Date: 20090409
  Receipt Date: 20090331
  Transmission Date: 20091009
  Serious: Yes (Death)
  Sender: FDA-Public Use
  Company Number: MX-PFIZER INC-2009192094

PATIENT

DRUGS (1)
  1. GENOTROPIN [Suspect]
     Route: 058
     Dates: start: 20080919

REACTIONS (1)
  - DEATH [None]
